FAERS Safety Report 5012389-3 (Version None)
Quarter: 2006Q2

REPORT INFORMATION
  Report Type: 
  Country: None (occurrence: None)
  Receive Date: 20060411
  Receipt Date: 20050406
  Transmission Date: 20061013
  Serious: Yes (Hospitalization)
  Sender: FDA-Public Use
  Company Number: 05P-163-0292167-00

PATIENT
  Age: 53 Year
  Sex: Male

DRUGS (2)
  1. BIAXIN XL [Suspect]
     Indication: SINUSITIS
     Dosage: 500 MG, 2 IN 1 D, PER ORAL
     Route: 048
     Dates: start: 20050324, end: 20050326
  2. CLAVULIN [Concomitant]

REACTIONS (10)
  - AGITATION [None]
  - CONVERSION DISORDER [None]
  - CRYING [None]
  - DYSGEUSIA [None]
  - MANIA [None]
  - MENTAL STATUS CHANGES [None]
  - PSYCHOMOTOR HYPERACTIVITY [None]
  - PSYCHOTIC DISORDER [None]
  - SCREAMING [None]
  - SPEECH DISORDER [None]
